FAERS Safety Report 9173830 (Version 1)
Quarter: 2013Q1

REPORT INFORMATION
  Report Type: Spontaneous
  Country: US (occurrence: None)
  Receive Date: 20130318
  Receipt Date: 20130318
  Transmission Date: 20140127
  Serious: No
  Sender: FDA-Public Use
  Company Number: None

PATIENT
  Age: 26 Year
  Sex: Female
  Weight: 58.97 kg

DRUGS (1)
  1. LEVAQUIN [Suspect]
     Indication: SINUSITIS
     Route: 048
     Dates: start: 20110308, end: 20110320

REACTIONS (7)
  - Weight increased [None]
  - Arthralgia [None]
  - Urinary tract infection [None]
  - Tendon pain [None]
  - Swelling [None]
  - Tenderness [None]
  - Decreased activity [None]
